FAERS Safety Report 14654467 (Version 1)
Quarter: 2018Q1

REPORT INFORMATION
  Report Type: Spontaneous
  Country: ES (occurrence: ES)
  Receive Date: 20180319
  Receipt Date: 20180319
  Transmission Date: 20180509
  Serious: Yes (Life-Threatening, Hospitalization, Disabling)
  Sender: FDA-Public Use
  Company Number: ES-ASTRAZENECA-2018SE33222

PATIENT
  Sex: Female
  Weight: 72 kg

DRUGS (7)
  1. PARACETAMOL [Suspect]
     Active Substance: ACETAMINOPHEN
     Dosage: 75 MG/650 MG, 3 DOSAGE FORM DAILY 1/1/1
     Route: 048
     Dates: start: 20151102
  2. OMEPRAZOL NORMON [Concomitant]
     Dosage: 1/0/0
     Route: 048
     Dates: start: 20100201
  3. HEMOVAS [Concomitant]
     Indication: VARICOSE VEIN
     Dosage: 0/1/1
     Route: 048
     Dates: start: 20100201
  4. CEFTRIAXONA [Concomitant]
     Active Substance: CEFTRIAXONE
     Dosage: 2G/0/0
     Route: 042
     Dates: start: 20171001, end: 20171116
  5. KEPPRA [Suspect]
     Active Substance: LEVETIRACETAM
     Indication: EPILEPSY
     Dosage: 0/0/1
     Route: 048
     Dates: start: 20170901, end: 20171030
  6. CRESTOR [Suspect]
     Active Substance: ROSUVASTATIN CALCIUM
     Dosage: 5 MG, DAILY, 0-0-1
     Route: 048
     Dates: start: 20100111
  7. FORTECORTIN [Interacting]
     Active Substance: DEXAMETHASONE
     Indication: ADENOCARCINOMA
     Dosage: 4 MG, 1/0/1
     Route: 048
     Dates: start: 20170901, end: 20171030

REACTIONS (5)
  - Pneumonitis [Recovered/Resolved with Sequelae]
  - Dyspnoea [Recovered/Resolved with Sequelae]
  - Transaminases increased [Recovered/Resolved]
  - Lung infiltration [Recovered/Resolved with Sequelae]
  - Pyrexia [Recovered/Resolved]

NARRATIVE: CASE EVENT DATE: 20170913
